FAERS Safety Report 22120798 (Version 4)
Quarter: 2023Q4

REPORT INFORMATION
  Report Type: Report from Study
  Country: CA (occurrence: CA)
  Receive Date: 20230321
  Receipt Date: 20231113
  Transmission Date: 20240110
  Serious: Yes (Death, Hospitalization, Other)
  Sender: FDA-Public Use
  Company Number: CA-002147023-NVSC2023CA062592

PATIENT
  Age: 59 Year
  Sex: Female
  Weight: 63.5 kg

DRUGS (9)
  1. GLEEVEC [Suspect]
     Active Substance: IMATINIB MESYLATE
     Indication: Malignant melanoma
     Dosage: UNK (STRENGTH: 100 MG)
     Route: 065
  2. GLEEVEC [Suspect]
     Active Substance: IMATINIB MESYLATE
     Dosage: UNK (STRENGTH: 100 MG)
     Route: 065
  3. GLEEVEC [Suspect]
     Active Substance: IMATINIB MESYLATE
     Dosage: UNK (STRENGTH: 100 MG)
     Route: 065
  4. GLEEVEC [Suspect]
     Active Substance: IMATINIB MESYLATE
     Dosage: UNK (STRENGTH: 100 MG)
     Route: 065
  5. GLEEVEC [Suspect]
     Active Substance: IMATINIB MESYLATE
     Dosage: UNK (STRENGTH: 100 MG)
     Route: 065
  6. GLEEVEC [Suspect]
     Active Substance: IMATINIB MESYLATE
     Dosage: UNK (STRENGTH: 100 MG)
     Route: 065
  7. GLEEVEC [Suspect]
     Active Substance: IMATINIB MESYLATE
     Dosage: UNK (STRENGTH: 100 MG)
     Route: 065
  8. GLEEVEC [Suspect]
     Active Substance: IMATINIB MESYLATE
     Dosage: UNK (STRENGTH: 100 MG)
     Route: 065
  9. GLEEVEC [Suspect]
     Active Substance: IMATINIB MESYLATE
     Dosage: 600 MG, QD
     Route: 065
     Dates: start: 20200410, end: 202301

REACTIONS (3)
  - Malignant melanoma [Fatal]
  - Malignant neoplasm progression [Fatal]
  - Haemorrhage intracranial [Unknown]
